FAERS Safety Report 17455542 (Version 1)
Quarter: 2020Q1

REPORT INFORMATION
  Report Type: Spontaneous
  Country: US (occurrence: US)
  Receive Date: 20200225
  Receipt Date: 20200225
  Transmission Date: 20200409
  Serious: No
  Sender: FDA-Public Use
  Company Number: None

PATIENT
  Age: 13 Year
  Sex: Female
  Weight: 45 kg

DRUGS (1)
  1. ORAJEL [Suspect]
     Active Substance: ALLANTOIN\BENZOCAINE\CAMPHOR (NATURAL)\DIMETHICONE\MENTHOL
     Indication: ORAL HERPES
     Dosage: ?          QUANTITY:1 RUB;?
     Route: 061
     Dates: start: 20200224, end: 20200224

REACTIONS (1)
  - Therapeutic product ineffective for unapproved indication [None]

NARRATIVE: CASE EVENT DATE: 20200224
